FAERS Safety Report 5151980-0 (Version None)
Quarter: 2006Q4

REPORT INFORMATION
  Report Type: 
  Country: None (occurrence: None)
  Receive Date: 20061109
  Receipt Date: 20061030
  Transmission Date: 20070319
  Serious: No
  Sender: FDA-Public Use
  Company Number: 2006-145821-NL

PATIENT
  Age: 30 Year
  Sex: Female

DRUGS (1)
  1. ETONOGESTREL [Suspect]
     Dosage: DF
     Dates: start: 20030724, end: 20060829

REACTIONS (3)
  - LYMPHOEDEMA [None]
  - MENSTRUATION IRREGULAR [None]
  - THROMBOPHLEBITIS [None]
